FAERS Safety Report 6167258-2 (Version None)
Quarter: 2009Q2

REPORT INFORMATION
  Report Type: 
  Country: None (occurrence: None)
  Receive Date: 20090424
  Receipt Date: 20090414
  Transmission Date: 20091009
  Serious: Yes (Hospitalization)
  Sender: FDA-Public Use
  Company Number: GB-ELI_LILLY_AND_COMPANY-GB200904002992

PATIENT
  Age: 72 Year
  Sex: Male

DRUGS (2)
  1. HUMALOG [Suspect]
  2. HUMALOG MIX 75/25 [Suspect]

REACTIONS (2)
  - HOSPITALISATION [None]
  - WRONG DRUG ADMINISTERED [None]
